FAERS Safety Report 5055161-0 (Version None)
Quarter: 2006Q3

REPORT INFORMATION
  Report Type: 
  Country: None (occurrence: None)
  Receive Date: 20060714
  Receipt Date: 20060708
  Transmission Date: 20061208
  Serious: Yes (Life-Threatening, Hospitalization, Disabling)
  Sender: FDA-Public Use
  Company Number: 2006-145207-NL

PATIENT
  Age: 41 Year
  Sex: Male

DRUGS (7)
  1. MIRTAZAPINE [Suspect]
     Indication: DEPRESSION
     Dosage: 1800 MG ORAL
     Route: 048
     Dates: start: 20060105, end: 20060505
  2. AMOBARBITAL SODIUM [Suspect]
     Indication: SLEEP DISORDER THERAPY
     Dosage: 3000 MG ORAL
     Route: 048
     Dates: start: 20060505
  3. CHLORPROMAZINE [Suspect]
     Indication: SLEEP DISORDER THERAPY
     Dosage: 1500 MG ORAL
     Route: 048
     Dates: start: 20060505
  4. ACETAMINOPHEN [Suspect]
     Indication: HEADACHE
     Dosage: 15000 MG ORAL
     Route: 048
     Dates: end: 20060505
  5. ACETAMINOPHEN [Suspect]
     Indication: PAIN
     Dosage: 15000 MG ORAL
     Route: 048
     Dates: end: 20060505
  6. MIDZOLAM [Suspect]
     Dosage: 150 MG ORAL
     Route: 048
     Dates: start: 20060505
  7. ALPRAZOLAM [Suspect]
     Dosage: DF ORAL
     Route: 048
     Dates: start: 20060505

REACTIONS (10)
  - COMA [None]
  - DYSPNOEA [None]
  - HAEMODIALYSIS [None]
  - HEPATIC FAILURE [None]
  - HYPERSOMNIA [None]
  - MIOSIS [None]
  - MULTIPLE DRUG OVERDOSE [None]
  - RENAL FAILURE ACUTE [None]
  - STRESS [None]
  - SUICIDE ATTEMPT [None]
